FAERS Safety Report 9014148 (Version 1)
Quarter: 2013Q1

REPORT INFORMATION
  Report Type: Spontaneous
  Country: IT (occurrence: IT)
  Receive Date: 20130115
  Receipt Date: 20130115
  Transmission Date: 20140127
  Serious: Yes (Other)
  Sender: FDA-Public Use
  Company Number: IT-TEVA-380097ISR

PATIENT
  Age: 80 None
  Sex: Male

DRUGS (5)
  1. CARBOPLATINO TEVA [Suspect]
     Indication: LUNG NEOPLASM MALIGNANT
     Dosage: 300 MILLIGRAM DAILY;
     Route: 042
     Dates: start: 20121114, end: 20121114
  2. GEMCITABINA ACCORD HEALTHCARE [Suspect]
     Indication: LUNG NEOPLASM MALIGNANT
     Dosage: 1328 MILLIGRAM DAILY;
     Route: 042
     Dates: start: 20121114, end: 20121114
  3. ONDANSETRON [Concomitant]
     Indication: LUNG NEOPLASM MALIGNANT
     Dosage: 8 MILLIGRAM DAILY;
     Dates: start: 20121114, end: 20121114
  4. SOLDESAM [Concomitant]
     Indication: LUNG NEOPLASM MALIGNANT
     Dosage: 8 MILLIGRAM DAILY; 8MG/2ML
     Route: 042
     Dates: start: 20121114, end: 20121114
  5. RANIDIL [Concomitant]
     Indication: LUNG NEOPLASM MALIGNANT
     Dosage: 100 MILLIGRAM DAILY; 50MG/5ML, INJECTABLE SOLUTION FOR INTRAVENOUS USE
     Dates: start: 20121114, end: 20121114

REACTIONS (5)
  - Stomatitis [Recovering/Resolving]
  - Dyspnoea [Recovering/Resolving]
  - Dizziness [Recovering/Resolving]
  - Rash [Recovering/Resolving]
  - Eye pruritus [Recovering/Resolving]
